FAERS Safety Report 4888833-9 (Version None)
Quarter: 2006Q1

REPORT INFORMATION
  Report Type: 
  Country: None (occurrence: None)
  Receive Date: 20060123
  Receipt Date: 20050718
  Transmission Date: 20060701
  Serious: Yes (Hospitalization)
  Sender: FDA-Public Use
  Company Number: US-MERCK-0507USA02892

PATIENT
  Sex: Female
  Weight: 79 kg

DRUGS (5)
  1. VIOXX [Suspect]
     Indication: OSTEOARTHRITIS
     Route: 048
     Dates: start: 20010628, end: 20040101
  2. CARDIZEM [Concomitant]
     Route: 065
  3. LOZOL [Concomitant]
     Route: 065
  4. DARVOCET-N 50 [Concomitant]
     Route: 065
  5. TENORMIN [Concomitant]
     Route: 065

REACTIONS (1)
  - MYOCARDIAL INFARCTION [None]
